FAERS Safety Report 8593388 (Version 3)
Quarter: 2013Q4

REPORT INFORMATION
  Report Type: Spontaneous
  Country: US (occurrence: US)
  Receive Date: 20120604
  Receipt Date: 20131129
  Transmission Date: 20140711
  Serious: Yes (Hospitalization)
  Sender: FDA-Public Use
  Company Number: US-ASTRAZENECA-2012SE35317

PATIENT
  Age: 57 Year
  Sex: Female

DRUGS (11)
  1. NEXIUM [Suspect]
     Indication: GASTROOESOPHAGEAL REFLUX DISEASE
     Route: 048
     Dates: start: 2003, end: 20110324
  2. NEXIUM [Suspect]
     Indication: OESOPHAGEAL DISORDER
     Route: 048
     Dates: start: 2003, end: 20110324
  3. NEXIUM [Suspect]
     Indication: GASTROOESOPHAGEAL REFLUX DISEASE
     Route: 048
     Dates: start: 20031112
  4. NEXIUM [Suspect]
     Indication: OESOPHAGEAL DISORDER
     Route: 048
     Dates: start: 20031112
  5. TUMS [Concomitant]
  6. ZOLOFT [Concomitant]
     Indication: DEPRESSION
     Dates: start: 20030131
  7. SYNTHROID [Concomitant]
     Dates: start: 20030305
  8. RANITIDINE [Concomitant]
     Dates: start: 20030108
  9. VITAMIN D [Concomitant]
     Dates: start: 20110418
  10. PREVACID [Concomitant]
     Indication: DYSPEPSIA
     Dates: start: 20050802
  11. CYMBALTA [Concomitant]
     Dates: start: 20061214

REACTIONS (18)
  - Fibula fracture [Unknown]
  - Foot fracture [Unknown]
  - Ankle fracture [Unknown]
  - Road traffic accident [Unknown]
  - Bone density decreased [Unknown]
  - Osteoporosis [Unknown]
  - Rib fracture [Unknown]
  - Joint injury [Unknown]
  - Calcium deficiency [Unknown]
  - Cataract [Unknown]
  - Arthritis [Unknown]
  - Vitamin D deficiency [Unknown]
  - Multiple fractures [Unknown]
  - Osteopenia [Unknown]
  - Fall [Unknown]
  - Carpal tunnel syndrome [Unknown]
  - Lower limb fracture [Unknown]
  - Ligament sprain [Unknown]
